FAERS Safety Report 14963168 (Version 1)
Quarter: 2018Q2

REPORT INFORMATION
  Report Type: Spontaneous
  Country: US (occurrence: US)
  Receive Date: 20180510
  Receipt Date: 20180510
  Transmission Date: 20180711
  Serious: No
  Sender: FDA-Public Use
  Company Number: None

PATIENT
  Age: 60 Year
  Sex: Male

DRUGS (2)
  1. RADICAVA [Suspect]
     Active Substance: EDARAVONE
     Indication: AMYOTROPHIC LATERAL SCLEROSIS
     Route: 041
  2. RADICAVA [Concomitant]
     Active Substance: EDARAVONE

REACTIONS (2)
  - Peripheral swelling [None]
  - Flushing [None]

NARRATIVE: CASE EVENT DATE: 20180510
